FAERS Safety Report 5082973-X (Version None)
Quarter: 2006Q3

REPORT INFORMATION
  Report Type: 
  Country: None (occurrence: None)
  Receive Date: 20060814
  Receipt Date: 20060727
  Transmission Date: 20061208
  Serious: Yes (Congenital Anomaly)
  Sender: FDA-Public Use
  Company Number: S06-FRA-03116-01

PATIENT
  Age: 32 Year
  Sex: Female

DRUGS (1)
  1. CITALOPRAM HYDROBROMIDE [Suspect]
     Indication: DEPRESSION
     Dosage: 20 MG QD PO
     Route: 048

REACTIONS (6)
  - CONGENITAL ANOMALY [None]
  - DRUG EXPOSURE DURING PREGNANCY [None]
  - FOETAL DISORDER [None]
  - HYDROCEPHALUS [None]
  - INTRACRANIAL ANEURYSM [None]
  - PREGNANCY [None]
